FAERS Safety Report 4727336-9 (Version None)
Quarter: 2005Q3

REPORT INFORMATION
  Report Type: 
  Country: None (occurrence: None)
  Receive Date: 20050727
  Receipt Date: 20050727
  Transmission Date: 20060218
  Serious: Yes (Hospitalization)
  Sender: FDA-Public Use
  Company Number: None

PATIENT
  Age: 73 Year
  Sex: Female
  Weight: 71.2147 kg

DRUGS (11)
  1. DIGOXIN [Suspect]
     Indication: CARDIOMYOPATHY
     Dosage: 0.125 MG PO DAILY
     Route: 048
  2. DIOVAN [Concomitant]
  3. MULTI-VITAMIN [Concomitant]
  4. K-DUR 10 [Concomitant]
  5. VIT C [Concomitant]
  6. SYNTHROID [Concomitant]
  7. LORAZEPAM [Concomitant]
  8. SINEQUIN [Concomitant]
  9. COREG [Concomitant]
  10. TYLENOL (CAPLET) [Concomitant]
  11. FUROSEMIDE [Concomitant]

REACTIONS (9)
  - ANOREXIA [None]
  - ASTHENIA [None]
  - ATRIOVENTRICULAR BLOCK [None]
  - CARDIOACTIVE DRUG LEVEL INCREASED [None]
  - DEHYDRATION [None]
  - MEDICATION ERROR [None]
  - MEMORY IMPAIRMENT [None]
  - NAUSEA [None]
  - NODAL ARRHYTHMIA [None]
